FAERS Safety Report 23764456 (Version 1)
Quarter: 2024Q2

REPORT INFORMATION
  Report Type: Spontaneous
  Country: US (occurrence: US)
  Receive Date: 20240420
  Receipt Date: 20240420
  Transmission Date: 20240716
  Serious: No
  Sender: FDA-Public Use
  Company Number: US-HALEON-2166838

PATIENT

DRUGS (1)
  1. ROBITUSSIN COUGH PLUS CHEST CONGESTION DM [Suspect]
     Active Substance: DEXTROMETHORPHAN HYDROBROMIDE\GUAIFENESIN
     Dosage: EXPDATE:20251031 , 1 - UNKNOWN (U)

REACTIONS (2)
  - Therapeutic product effect variable [Unknown]
  - Product storage error [Unknown]

NARRATIVE: CASE EVENT DATE: 20240401
